FAERS Safety Report 5606798-9 (Version None)
Quarter: 2008Q1

REPORT INFORMATION
  Report Type: 
  Country: None (occurrence: None)
  Receive Date: 20080125
  Receipt Date: 20080111
  Transmission Date: 20080703
  Serious: Yes (Death)
  Sender: FDA-Public Use
  Company Number: US022291

PATIENT

DRUGS (1)
  1. FENTANYL [Suspect]

REACTIONS (1)
  - DRUG TOXICITY [None]
